FAERS Safety Report 15295755 (Version 1)
Quarter: 2018Q3

REPORT INFORMATION
  Report Type: Spontaneous
  Country: US (occurrence: US)
  Receive Date: 20180820
  Receipt Date: 20180820
  Transmission Date: 20181010
  Serious: Yes (Other)
  Sender: FDA-Public Use
  Company Number: US-SA-2018SA076394

PATIENT
  Age: 30 Year
  Sex: Female
  Weight: 135.17 kg

DRUGS (16)
  1. FUROSEMIDE. [Concomitant]
     Active Substance: FUROSEMIDE
     Dosage: UNK UNK, UNK
     Route: 065
     Dates: start: 20061120, end: 20110519
  2. NORTRIPTYLINE [Concomitant]
     Active Substance: NORTRIPTYLINE
     Dosage: UNK UNK, UNK
     Route: 065
     Dates: start: 20050506, end: 20070506
  3. ERY?TAB [Concomitant]
     Active Substance: ERYTHROMYCIN
     Dosage: UNK UNK, UNK
     Route: 065
     Dates: start: 20050208, end: 20070208
  4. TAXOTERE [Suspect]
     Active Substance: DOCETAXEL
     Indication: BREAST CANCER
     Dosage: UNK UNK,UNK
     Route: 042
     Dates: start: 20061122, end: 20061122
  5. COTRIMOXAZOLE [Concomitant]
     Active Substance: SULFAMETHOXAZOLE\TRIMETHOPRIM
     Dosage: UNK UNK, UNK
     Route: 065
     Dates: start: 20050204, end: 20070204
  6. ALBUTEROL [SALBUTAMOL] [Concomitant]
     Dosage: UNK UNK, UNK
     Route: 065
     Dates: start: 20050204, end: 20050204
  7. IBUPROFEN. [Concomitant]
     Active Substance: IBUPROFEN
     Dosage: UNK UNK, UNK
     Route: 065
     Dates: start: 20041018, end: 20080927
  8. COREG [Concomitant]
     Active Substance: CARVEDILOL
     Dosage: UNK UNK, UNK
     Route: 065
     Dates: start: 20060912, end: 20080911
  9. LISINOPRIL. [Concomitant]
     Active Substance: LISINOPRIL
     Dosage: UNK UNK, UNK
     Route: 065
     Dates: start: 20060517, end: 20080911
  10. DEXAMETHASONE. [Concomitant]
     Active Substance: DEXAMETHASONE
     Dosage: UNK UNK, UNK
     Route: 065
     Dates: start: 20060317, end: 20080316
  11. ERYTHROMYCIN. [Concomitant]
     Active Substance: ERYTHROMYCIN
     Dosage: UNK UNK, UNK
     Route: 065
     Dates: start: 20050208, end: 20070208
  12. NITROFURANTOIN. [Concomitant]
     Active Substance: NITROFURANTOIN
     Dosage: UNK UNK, UNK
     Route: 065
     Dates: start: 20041011, end: 20080920
  13. PARAPLATIN [Concomitant]
     Active Substance: CARBOPLATIN
     Indication: CHEMOTHERAPY
     Dosage: UNK UNK, UNK
     Route: 065
  14. TAXOTERE [Suspect]
     Active Substance: DOCETAXEL
     Dosage: UNK
     Route: 042
     Dates: start: 2006, end: 2006
  15. NEOSAR [Concomitant]
     Active Substance: CYCLOPHOSPHAMIDE
     Indication: CHEMOTHERAPY
     Dosage: UNK UNK, UNK
     Route: 065
  16. ADRIAMYCIN [Concomitant]
     Active Substance: DOXORUBICIN HYDROCHLORIDE
     Indication: CHEMOTHERAPY
     Dosage: UNK UNK, UNK
     Route: 065

REACTIONS (6)
  - Pain [Unknown]
  - Anxiety [Unknown]
  - Impaired quality of life [Unknown]
  - Psychological trauma [Unknown]
  - Emotional distress [Unknown]
  - Alopecia [Not Recovered/Not Resolved]

NARRATIVE: CASE EVENT DATE: 200606
